FAERS Safety Report 4599228-X (Version None)
Quarter: 2005Q1

REPORT INFORMATION
  Report Type: 
  Country: None (occurrence: None)
  Receive Date: 20050302
  Receipt Date: 20050302
  Transmission Date: 20050727
  Serious: Yes (Hospitalization, Other)
  Sender: FDA-Public Use
  Company Number: None

PATIENT
  Age: 41 Year
  Sex: Female
  Weight: 53.0709 kg

DRUGS (1)
  1. GABITRIL [Suspect]
     Indication: ARTHRALGIA
     Dosage: 4MG  4 X DAY  ORAL
     Route: 048
     Dates: start: 20040905, end: 20050205

REACTIONS (2)
  - CONVULSION [None]
  - LOSS OF CONSCIOUSNESS [None]
